FAERS Safety Report 23547893 (Version 1)
Quarter: 2024Q1

REPORT INFORMATION
  Report Type: Report from Study
  Country: NL (occurrence: NL)
  Receive Date: 20240221
  Receipt Date: 20240221
  Transmission Date: 20240410
  Serious: Yes (Other)
  Sender: FDA-Public Use
  Company Number: NL-ABBVIE-21K-114-3981812-00

PATIENT
  Sex: Male

DRUGS (13)
  1. CARBIDOPA\LEVODOPA [Suspect]
     Active Substance: CARBIDOPA\LEVODOPA
     Indication: Parkinson^s disease
     Route: 050
     Dates: start: 20180409
  2. CARBIDOPA\LEVODOPA [Suspect]
     Active Substance: CARBIDOPA\LEVODOPA
     Dosage: CND: 4.2 ML/H
     Route: 050
  3. CARBIDOPA\LEVODOPA [Suspect]
     Active Substance: CARBIDOPA\LEVODOPA
     Dosage: CD: 5.8 ML/H
     Route: 050
  4. CARBIDOPA\LEVODOPA [Suspect]
     Active Substance: CARBIDOPA\LEVODOPA
     Dosage: MD: 8.2 ML CD: 5.8 ML/H
     Route: 050
     Dates: start: 20230829, end: 20240103
  5. CARBIDOPA\LEVODOPA [Suspect]
     Active Substance: CARBIDOPA\LEVODOPA
     Dosage: MD: 2 ML, CD: 6.1 ML/H, ND: 3 ML, CND: 4.2 ML/H, END: 0.7 ML
     Route: 050
     Dates: start: 20230815, end: 20230823
  6. CARBIDOPA\LEVODOPA [Suspect]
     Active Substance: CARBIDOPA\LEVODOPA
     Dosage: MD 3.0 ML CND 4.5 ML/H END 0.7 ML
     Route: 050
  7. CARBIDOPA\LEVODOPA [Suspect]
     Active Substance: CARBIDOPA\LEVODOPA
     Dosage: MD: 8.2 ML CD: 5.8 ML/H
     Route: 050
  8. CARBIDOPA\LEVODOPA [Suspect]
     Active Substance: CARBIDOPA\LEVODOPA
     Dosage: ND 3.0 ML; CND 5.2 ML/H; END 0.7 ML
     Route: 050
     Dates: start: 20230717, end: 20230815
  9. CARBIDOPA\LEVODOPA [Suspect]
     Active Substance: CARBIDOPA\LEVODOPA
     Dosage: ND 3.0 ML; CND 5.4 ML/H; END 0.7 ML
     Route: 050
     Dates: start: 20240103
  10. CARBIDOPA\LEVODOPA [Suspect]
     Active Substance: CARBIDOPA\LEVODOPA
     Dosage: MD: 2 ML, CD: 6.1 ML/H, ND: 3 ML, CND: 4.2 ML/H, END: 0.7 ML
  11. CARBIDOPA\LEVODOPA [Suspect]
     Active Substance: CARBIDOPA\LEVODOPA
     Dosage: CD: 5.8 ML/H
  12. CARBIDOPA\LEVODOPA [Suspect]
     Active Substance: CARBIDOPA\LEVODOPA
     Dosage: MD 4.0 ML; CD 6.5 ML/H; ED 1.2 ML
     Route: 050
     Dates: start: 20230823, end: 20230829
  13. RIVASTIGMINE [Concomitant]
     Active Substance: RIVASTIGMINE
     Indication: Hallucination

REACTIONS (24)
  - Dependence [Not Recovered/Not Resolved]
  - Psychomotor hyperactivity [Not Recovered/Not Resolved]
  - Feeling cold [Unknown]
  - Musculoskeletal stiffness [Unknown]
  - Myalgia [Unknown]
  - Cognitive disorder [Unknown]
  - Muscle rigidity [Unknown]
  - Impulse-control disorder [Unknown]
  - Mobility decreased [Recovered/Resolved]
  - Feeling abnormal [Recovered/Resolved]
  - Impaired quality of life [Not Recovered/Not Resolved]
  - Overdose [Unknown]
  - Panic reaction [Not Recovered/Not Resolved]
  - Muscle spasms [Unknown]
  - Weight decreased [Recovered/Resolved]
  - Unevaluable event [Not Recovered/Not Resolved]
  - Unevaluable event [Recovered/Resolved]
  - Bradykinesia [Not Recovered/Not Resolved]
  - Therapeutic product effect decreased [Recovered/Resolved]
  - Freezing phenomenon [Not Recovered/Not Resolved]
  - Depression [Not Recovered/Not Resolved]
  - On and off phenomenon [Unknown]
  - Pain [Unknown]
  - Unevaluable event [Not Recovered/Not Resolved]

NARRATIVE: CASE EVENT DATE: 20220101
